FAERS Safety Report 5131111-3 (Version None)
Quarter: 2006Q3

REPORT INFORMATION
  Report Type: 
  Country: None (occurrence: None)
  Receive Date: 20060825
  Receipt Date: 20060508
  Transmission Date: 20061208
  Serious: No
  Sender: FDA-Public Use
  Company Number: 06P-163-0332645-00

PATIENT
  Age: 45 Year
  Sex: Male
  Weight: 77.1115 kg

DRUGS (5)
  1. KALETRA [Suspect]
     Indication: HIV INFECTION
     Dosage: 2 TABLET, 2 IN 1 D, PER ORAL
     Route: 048
     Dates: start: 20060430
  2. KALETRA [Suspect]
     Indication: HIV INFECTION
     Dosage: 3 CAPSULE, 2 IN 1 D, PER ORAL
     Route: 048
     Dates: end: 20060429
  3. LAMIVUDINE + ZIDOVUDINE [Concomitant]
  4. VALACYCLOVIR HCL [Concomitant]
  5. FOLIC ACID [Concomitant]

REACTIONS (1)
  - DIARRHOEA [None]
